FAERS Safety Report 7262277-7 (Version None)
Quarter: 2011Q1

REPORT INFORMATION
  Report Type: 
  Country: None (occurrence: None)
  Receive Date: 20110130
  Receipt Date: 20101116
  Transmission Date: 20110831
  Serious: No
  Sender: FDA-Public Use
  Company Number: US-ABBOTT-10P-163-0685587-00

PATIENT
  Sex: Female
  Weight: 49.94 kg

DRUGS (2)
  1. UNKNOWN MEDICATION [Concomitant]
     Indication: JUVENILE ARTHRITIS
     Route: 048
  2. HUMIRA [Suspect]
     Indication: JUVENILE ARTHRITIS
     Route: 058
     Dates: start: 20100601

REACTIONS (2)
  - INJECTION SITE PAIN [None]
  - INJECTION SITE HAEMATOMA [None]
